FAERS Safety Report 18267302 (Version 1)
Quarter: 2020Q3

REPORT INFORMATION
  Report Type: Spontaneous
  Country: US (occurrence: US)
  Receive Date: 20200915
  Receipt Date: 20200915
  Transmission Date: 20201103
  Serious: Yes (Other)
  Sender: FDA-Public Use
  Company Number: None

PATIENT

DRUGS (1)
  1. CRISP CBD [Suspect]
     Active Substance: CANNABIDIOL\HERBALS
     Indication: ANXIETY
     Dosage: ?          QUANTITY:1 INHALATION(S);OTHER FREQUENCY:1 BOTTLE PER 2 DAY;?
     Route: 055

REACTIONS (5)
  - Mood swings [None]
  - Product formulation issue [None]
  - Intentional product misuse [None]
  - Drug dependence [None]
  - Euphoric mood [None]

NARRATIVE: CASE EVENT DATE: 20190914
